FAERS Safety Report 25917286 (Version 1)
Quarter: 2025Q4

REPORT INFORMATION
  Report Type: Report from Study
  Country: US (occurrence: US)
  Receive Date: 20251014
  Receipt Date: 20251014
  Transmission Date: 20260118
  Serious: Yes (Death)
  Sender: AUROBINDO
  Company Number: US-AUROBINDO-AUR-APL-2022-025574

PATIENT
  Sex: Male

DRUGS (4)
  1. BELINOSTAT [Suspect]
     Active Substance: BELINOSTAT
     Indication: Chondrosarcoma
     Dosage: UNK, 3620
     Route: 065
     Dates: start: 20220207
  2. BELINOSTAT [Suspect]
     Active Substance: BELINOSTAT
     Dosage: UNK
     Route: 065
     Dates: start: 20220208
  3. CEDAZURIDINE\DECITABINE [Suspect]
     Active Substance: CEDAZURIDINE\DECITABINE
     Indication: Chondrosarcoma
     Dosage: UNK
     Route: 065
     Dates: start: 20220207
  4. CEDAZURIDINE\DECITABINE [Suspect]
     Active Substance: CEDAZURIDINE\DECITABINE
     Dosage: UNK
     Route: 065
     Dates: start: 20220208

REACTIONS (3)
  - Disease progression [Fatal]
  - Anaemia [Unknown]
  - Pain [Unknown]

NARRATIVE: CASE EVENT DATE: 20220207
